FAERS Safety Report 23774348 (Version 2)
Quarter: 2024Q3

REPORT INFORMATION
  Report Type: Spontaneous
  Country: JP (occurrence: None)
  Receive Date: 20240423
  Receipt Date: 20240814
  Transmission Date: 20241017
  Serious: Yes (Death, Hospitalization, Disabling)
  Sender: ASTRAZENECA
  Company Number: 2024A089442

PATIENT
  Age: 64 Year
  Sex: Female
  Weight: 65 kg

DRUGS (9)
  1. LYNPARZA [Suspect]
     Active Substance: OLAPARIB
     Indication: Ovarian cancer recurrent
     Dosage: DOSE UNKNOWN
     Route: 048
     Dates: start: 20180608, end: 20230915
  2. METOCLOPRAMIDE [Concomitant]
     Active Substance: METOCLOPRAMIDE
     Dosage: AS REQUIRED
     Route: 048
     Dates: start: 20180608, end: 201807
  3. WAPLON [Concomitant]
     Dosage: AS REQUIRED
     Route: 049
     Dates: start: 20180608, end: 202004
  4. LOXOPROFEN SODIUM [Concomitant]
     Active Substance: LOXOPROFEN SODIUM
     Dosage: AS REQUIRED
     Route: 048
     Dates: start: 20180720, end: 202009
  5. REBAMIPIDE [Concomitant]
     Active Substance: REBAMIPIDE
     Route: 048
     Dates: start: 20180720, end: 202009
  6. RINDERON VG [Concomitant]
     Active Substance: BETAMETHASONE VALERATE\GENTAMICIN SULFATE
     Dosage: AS REQUIRED
     Route: 062
     Dates: start: 20180817, end: 202007
  7. KETOPROFEN [Concomitant]
     Active Substance: KETOPROFEN
     Dosage: AS REQUIRED
     Route: 062
     Dates: start: 20190215, end: 20230818
  8. CLARITIN [Concomitant]
     Active Substance: LORATADINE
     Route: 048
     Dates: start: 20190301, end: 20190315
  9. TRANEXAMIC ACID [Concomitant]
     Active Substance: TRANEXAMIC ACID
     Route: 048
     Dates: start: 20190301, end: 20190315

REACTIONS (2)
  - Myelodysplastic syndrome [Fatal]
  - Leukaemia [Not Recovered/Not Resolved]

NARRATIVE: CASE EVENT DATE: 20230916
